FAERS Safety Report 12436330 (Version 2)
Quarter: 2016Q3

REPORT INFORMATION
  Report Type: Spontaneous
  Country: US (occurrence: US)
  Receive Date: 20160605
  Receipt Date: 20160725
  Transmission Date: 20161109
  Serious: No
  Sender: FDA-Public Use
  Company Number: US-009507513-1606USA001267

PATIENT
  Sex: Female
  Weight: 56.24 kg

DRUGS (1)
  1. IMPLANON [Suspect]
     Active Substance: ETONOGESTREL
     Dosage: UNK
     Route: 059
     Dates: start: 20160310, end: 20160602

REACTIONS (4)
  - Mood swings [Unknown]
  - Mood altered [Recovered/Resolved]
  - Weight increased [Recovered/Resolved]
  - Menstruation irregular [Unknown]

NARRATIVE: CASE EVENT DATE: 2016
